FAERS Safety Report 23021707 (Version 1)
Quarter: 2023Q4

REPORT INFORMATION
  Report Type: Spontaneous
  Country: IE (occurrence: IE)
  Receive Date: 20231003
  Receipt Date: 20231003
  Transmission Date: 20240109
  Serious: Yes (Disabling)
  Sender: FDA-Public Use
  Company Number: None

PATIENT
  Age: 49 Year
  Sex: Female

DRUGS (1)
  1. MOXIFLOXACIN [Suspect]
     Active Substance: MOXIFLOXACIN
     Indication: Wound infection

REACTIONS (4)
  - Visual acuity reduced [Not Recovered/Not Resolved]
  - Eye injury [Not Recovered/Not Resolved]
  - Iris hypopigmentation [Not Recovered/Not Resolved]
  - Iris transillumination defect [Not Recovered/Not Resolved]

NARRATIVE: CASE EVENT DATE: 20210101
